FAERS Safety Report 8183241-X (Version None)
Quarter: 2012Q1

REPORT INFORMATION
  Report Type: 
  Country: None (occurrence: None)
  Receive Date: 20120127
  Receipt Date: 20111118
  Transmission Date: 20120608
  Serious: Yes (Other)
  Sender: FDA-Public Use
  Company Number: 1000025640

PATIENT
  Age: 84 Year
  Sex: Male

DRUGS (1)
  1. BYSTOLIC [Suspect]
     Indication: HYPERTENSION
     Dosage: 5 MG QAM AND 2.5MG QPM (1 IN 1 D)
     Dates: start: 20110401

REACTIONS (1)
  - PLATELET COUNT DECREASED [None]
